FAERS Safety Report 8235009 (Version 3)
Quarter: 2013Q1

REPORT INFORMATION
  Report Type: Report from Study
  Country: US (occurrence: US)
  Receive Date: 20111108
  Receipt Date: 20130307
  Transmission Date: 20140127
  Serious: Yes (Death, Life-Threatening, Hospitalization)
  Sender: FDA-Public Use
  Company Number: US-BRISTOL-MYERS SQUIBB COMPANY-16214264

PATIENT
  Age: 62 Year
  Sex: Female
  Weight: 63.95 kg

DRUGS (21)
  1. CARBOPLATIN [Suspect]
     Indication: NON-SMALL CELL LUNG CANCER
     Dosage: 1DF=6 AUC.?EVERY 21 DAYS
     Route: 042
     Dates: start: 20111011
  2. PACLITAXEL [Suspect]
     Indication: NON-SMALL CELL LUNG CANCER
     Dosage: EVERY 21 DAYS
     Route: 042
     Dates: start: 20111011
  3. BEVACIZUMAB [Suspect]
     Indication: NON-SMALL CELL LUNG CANCER
     Dosage: EVERY 21 DAYS
     Route: 042
     Dates: start: 20111011
  4. ATENOLOL [Concomitant]
     Dates: start: 2005
  5. FOLATE [Concomitant]
     Dates: start: 20110920
  6. IBUPROFEN [Concomitant]
     Dates: start: 201105
  7. LOSARTAN [Concomitant]
     Dates: start: 2005
  8. ONDANSETRON [Concomitant]
     Dates: start: 20110922
  9. PROCHLORPERAZINE [Concomitant]
     Dates: start: 20110929
  10. SENNA-S [Concomitant]
     Dates: start: 20110923
  11. TYLENOL PM [Concomitant]
     Dates: start: 1996
  12. OXYCONTIN [Concomitant]
     Dates: start: 20111007
  13. VITAMIN B12 [Concomitant]
     Dates: start: 20110929
  14. MIRALAX [Concomitant]
     Dates: start: 20111011, end: 20111011
  15. PALONOSETRON [Concomitant]
     Dates: start: 20111011, end: 20111011
  16. DEXAMETHASONE [Concomitant]
     Dates: start: 20111011, end: 20111011
  17. RANITIDINE [Concomitant]
     Dates: start: 20111011, end: 20111011
  18. DIPHENHYDRAMINE [Concomitant]
     Dates: start: 20111011
  19. MAGNESIUM [Concomitant]
     Dates: start: 20111011
  20. POTASSIUM [Concomitant]
     Dates: start: 20111011
  21. PARACETAMOL [Concomitant]

REACTIONS (3)
  - Malignant neoplasm progression [Fatal]
  - Neutropenic sepsis [Recovered/Resolved]
  - Cardiomyopathy acute [Recovered/Resolved]
